FAERS Safety Report 9834312 (Version 2)
Quarter: 2014Q1

REPORT INFORMATION
  Report Type: Spontaneous
  Country: US (occurrence: US)
  Receive Date: 20140122
  Receipt Date: 20140122
  Transmission Date: 20141002
  Serious: Yes (Hospitalization)
  Sender: FDA-Public Use
  Company Number: US-ASTRAZENECA-2011SE53304

PATIENT
  Age: 73 Year
  Sex: Female
  Weight: 89.8 kg

DRUGS (16)
  1. CRESTOR [Suspect]
     Indication: CARDIAC DISORDER
     Route: 048
  2. CRESTOR [Suspect]
     Indication: HYPERTENSION
     Route: 048
  3. CRESTOR [Suspect]
     Indication: CARDIAC DISORDER
     Dosage: CUT AND TRIED TO TAKE THEM EVERY OTHER DAY
     Route: 048
  4. CRESTOR [Suspect]
     Indication: HYPERTENSION
     Dosage: CUT AND TRIED TO TAKE THEM EVERY OTHER DAY
     Route: 048
  5. CRESTOR [Suspect]
     Indication: CARDIAC DISORDER
     Route: 048
  6. CRESTOR [Suspect]
     Indication: HYPERTENSION
     Route: 048
  7. CRESTOR [Suspect]
     Indication: CARDIAC DISORDER
     Route: 048
  8. CRESTOR [Suspect]
     Indication: HYPERTENSION
     Route: 048
  9. CRESTOR [Suspect]
     Indication: CARDIAC DISORDER
     Route: 048
  10. CRESTOR [Suspect]
     Indication: HYPERTENSION
     Route: 048
  11. LISINOPRIL [Suspect]
     Route: 048
  12. HEPARIN [Suspect]
     Route: 065
  13. IANSOPRAZOLE [Concomitant]
     Indication: GASTROOESOPHAGEAL REFLUX DISEASE
  14. RANITIDINE [Concomitant]
     Dates: start: 201312
  15. CARVEDILOL [Concomitant]
     Indication: GASTRIC DISORDER
     Dates: start: 2013
  16. CARVEDILOL [Concomitant]
     Indication: GASTRIC DISORDER
     Dates: start: 2013

REACTIONS (6)
  - Myocardial infarction [Unknown]
  - Thrombosis [Unknown]
  - Adverse drug reaction [Unknown]
  - Dizziness [Unknown]
  - Arthropathy [Unknown]
  - Intentional drug misuse [Unknown]
